FAERS Safety Report 14712753 (Version 6)
Quarter: 2019Q1

REPORT INFORMATION
  Report Type: Report from Study
  Country: IT (occurrence: IT)
  Receive Date: 20180404
  Receipt Date: 20190318
  Transmission Date: 20190417
  Serious: Yes (Other)
  Sender: FDA-Public Use
  Company Number: IT-ROCHE-2094496

PATIENT
  Age: 47 Year
  Sex: Female
  Weight: 58 kg

DRUGS (44)
  1. GLICLAZIDE [Concomitant]
     Active Substance: GLICLAZIDE
  2. ANTRA [Concomitant]
     Active Substance: OMEPRAZOLE
     Route: 065
     Dates: start: 20180223, end: 20180301
  3. PERFALGAN [Concomitant]
     Active Substance: ACETAMINOPHEN
     Route: 065
     Dates: start: 20181123, end: 20181123
  4. ACICLIN [Concomitant]
     Active Substance: ACYCLOVIR
     Route: 065
     Dates: start: 20180302
  5. TRIMETON [Concomitant]
     Active Substance: CHLORPHENIRAMINE MALEATE
     Route: 065
     Dates: start: 20180216
  6. ANTRA [Concomitant]
     Active Substance: OMEPRAZOLE
     Route: 065
     Dates: start: 20180220, end: 20180222
  7. PERFALGAN [Concomitant]
     Active Substance: ACETAMINOPHEN
     Route: 065
     Dates: start: 20180316
  8. TRIMETON [Concomitant]
     Active Substance: CHLORPHENIRAMINE MALEATE
     Route: 065
     Dates: start: 20180216, end: 20180216
  9. BACTRIM [Concomitant]
     Active Substance: SULFAMETHOXAZOLE\TRIMETHOPRIM
     Dosage: BID FOR 2 DAYS WEEKLY
     Route: 065
     Dates: start: 20180309
  10. DEURSIL [Concomitant]
     Active Substance: URSODIOL
     Indication: PROPHYLAXIS
     Route: 065
     Dates: start: 20180205
  11. ANTRA [Concomitant]
     Active Substance: OMEPRAZOLE
     Route: 065
     Dates: start: 20180302
  12. DELTACORTENE [Concomitant]
     Active Substance: PREDNISONE
     Indication: BONE PAIN
     Route: 065
     Dates: start: 20180302, end: 20180319
  13. LEVOXACIN [Concomitant]
     Active Substance: LEVOFLOXACIN
     Indication: PROPHYLAXIS
     Dosage: FOR 5 DAYS EACH CYCLE
     Route: 065
     Dates: start: 20180309, end: 20180327
  14. FLEBOCORTID [Concomitant]
     Active Substance: HYDROCORTISONE SODIUM SUCCINATE
     Route: 065
     Dates: start: 20180316
  15. BREVA [Concomitant]
     Active Substance: ALBUTEROL\IPRATROPIUM
     Indication: COUGH
     Route: 065
     Dates: start: 20190104, end: 20190110
  16. ANTRA [Concomitant]
     Active Substance: OMEPRAZOLE
     Indication: PROPHYLAXIS
     Route: 065
     Dates: start: 20180205, end: 20180211
  17. MEPRAL [Concomitant]
     Active Substance: OMEPRAZOLE SODIUM
     Indication: PROPHYLAXIS
     Route: 065
     Dates: start: 20180211, end: 20180219
  18. URBASON [Concomitant]
     Active Substance: METHYLPREDNISOLONE
     Route: 065
     Dates: start: 20180215, end: 20180216
  19. PERFALGAN [Concomitant]
     Active Substance: ACETAMINOPHEN
     Indication: PYREXIA
     Route: 065
     Dates: start: 20180216, end: 20180216
  20. FILGRASTIM [Concomitant]
     Active Substance: FILGRASTIM
     Indication: NEUTROPENIA
     Route: 065
     Dates: start: 20180309, end: 20180313
  21. RANITIDINE. [Concomitant]
     Active Substance: RANITIDINE
     Route: 065
     Dates: start: 20180316
  22. CLENIL (ITALY) [Concomitant]
     Indication: COUGH
     Route: 065
     Dates: start: 20190104, end: 20190110
  23. RITUXIMAB. [Suspect]
     Active Substance: RITUXIMAB
     Indication: MARGINAL ZONE LYMPHOMA
     Dosage: DATE OF MOST RECENT DOSE OF RITUXIMAB PRIOR TO ADVERSE EVENT: 16/FEB/2018
     Route: 042
     Dates: start: 20180216
  24. FLEBOCORTID [Concomitant]
     Active Substance: HYDROCORTISONE SODIUM SUCCINATE
     Route: 065
     Dates: start: 20180316
  25. LYRICA [Concomitant]
     Active Substance: PREGABALIN
     Indication: NEUROPATHY PERIPHERAL
     Route: 065
     Dates: start: 20180608
  26. RITUXIMAB. [Suspect]
     Active Substance: RITUXIMAB
     Indication: MARGINAL ZONE LYMPHOMA
     Dosage: DATE OF MOST RECENT DOSE OF RITUXIMAB PRIOR TO ADVERSE EVENT: 16/MAR/2018
     Route: 058
     Dates: start: 20180316
  27. QUARK [Concomitant]
     Active Substance: RAMIPRIL
  28. FASTURTEC [Concomitant]
     Active Substance: RASBURICASE
     Indication: PROPHYLAXIS
     Route: 065
     Dates: start: 20180215, end: 20180215
  29. ZYLORIC [Concomitant]
     Active Substance: ALLOPURINOL
     Indication: PROPHYLAXIS
     Route: 065
     Dates: start: 20180309
  30. ATEZOLIZUMAB. [Suspect]
     Active Substance: ATEZOLIZUMAB
     Indication: MARGINAL ZONE LYMPHOMA
     Dosage: DATE OF MOST RECENT DOSE OF ATEZOLIZUMAB PRIOR TO ADVERSE EVENT: 16/MAR/2018
     Route: 042
     Dates: start: 20180216
  31. LAEVOLAC [Concomitant]
     Active Substance: LACTULOSE
     Indication: PROPHYLAXIS
     Route: 065
     Dates: start: 20180206, end: 20180219
  32. URBASON [Concomitant]
     Active Substance: METHYLPREDNISOLONE
     Indication: PROPHYLAXIS
     Route: 065
     Dates: start: 20180211, end: 20180214
  33. FLEBOCORTID [Concomitant]
     Active Substance: HYDROCORTISONE SODIUM SUCCINATE
     Route: 065
     Dates: start: 20180216, end: 20180216
  34. DIFLUCAN [Concomitant]
     Active Substance: FLUCONAZOLE
     Indication: PROPHYLAXIS
     Dosage: FOR 5 DAYS EACH CYCLE
     Route: 065
     Dates: start: 20180309, end: 20180327
  35. ROCEFIN [Concomitant]
     Active Substance: CEFTRIAXONE SODIUM
     Indication: PYREXIA
     Route: 042
     Dates: start: 20181123, end: 20181123
  36. BACTRIM [Concomitant]
     Active Substance: SULFAMETHOXAZOLE\TRIMETHOPRIM
     Indication: PROPHYLAXIS
     Route: 065
     Dates: start: 20180215, end: 20180301
  37. NOBISTAR [Concomitant]
     Active Substance: NEBIVOLOL HYDROCHLORIDE
  38. METFORMIN [Concomitant]
     Active Substance: METFORMIN HYDROCHLORIDE
  39. FASTURTEC [Concomitant]
     Active Substance: RASBURICASE
     Route: 065
     Dates: start: 20180216, end: 20180219
  40. ACICLOVIR [Concomitant]
     Active Substance: ACYCLOVIR
     Indication: PROPHYLAXIS
     Route: 065
     Dates: start: 20180215, end: 20180301
  41. TRIMETON [Concomitant]
     Active Substance: CHLORPHENIRAMINE MALEATE
     Route: 065
     Dates: start: 20180316
  42. DEBRIDAT [Concomitant]
     Active Substance: TRIMEBUTINE MALEATE
     Route: 065
     Dates: start: 20180302, end: 20180308
  43. MYCOSTATIN [Concomitant]
     Active Substance: NYSTATIN
     Indication: PROPHYLAXIS
     Route: 065
     Dates: start: 20180309
  44. ACICLIN [Concomitant]
     Active Substance: ACYCLOVIR
     Indication: PROPHYLAXIS
     Route: 065
     Dates: start: 20180309

REACTIONS (1)
  - Systemic inflammatory response syndrome [Not Recovered/Not Resolved]

NARRATIVE: CASE EVENT DATE: 20180320
